FAERS Safety Report 21732853 (Version 1)
Quarter: 2022Q4

REPORT INFORMATION
  Report Type: Spontaneous
  Country: US (occurrence: US)
  Receive Date: 20221215
  Receipt Date: 20221215
  Transmission Date: 20230112
  Serious: No
  Sender: FDA-Public Use
  Company Number: US-STRIDES ARCOLAB LIMITED-2022SP001980

PATIENT
  Age: 38 Year
  Sex: Female

DRUGS (2)
  1. HALOPERIDOL [Suspect]
     Active Substance: HALOPERIDOL
     Indication: Cannabinoid hyperemesis syndrome
     Dosage: 5 MILLIGRAM
     Route: 042
  2. CAPSAICIN [Concomitant]
     Active Substance: CAPSAICIN
     Indication: Cannabinoid hyperemesis syndrome
     Dosage: UNK
     Route: 061

REACTIONS (1)
  - Off label use [Unknown]
